FAERS Safety Report 8490908-2 (Version None)
Quarter: 2012Q3

REPORT INFORMATION
  Report Type: 
  Country: None (occurrence: None)
  Receive Date: 20120706
  Receipt Date: 20120625
  Transmission Date: 20120928
  Serious: Yes (Hospitalization)
  Sender: FDA-Public Use
  Company Number: US-GENZYME-RENA-1001550

PATIENT
  Age: 42 Year
  Sex: Male

DRUGS (1)
  1. RENVELA [Suspect]
     Indication: PRODUCT USED FOR UNKNOWN INDICATION
     Dosage: UNK
     Route: 065

REACTIONS (2)
  - STREPTOCOCCUS TEST POSITIVE [None]
  - PYREXIA [None]
